FAERS Safety Report 5901782-X (Version None)
Quarter: 2008Q3

REPORT INFORMATION
  Report Type: 
  Country: None (occurrence: None)
  Receive Date: 20080926
  Receipt Date: 20080926
  Transmission Date: 20090109
  Serious: Yes (Other)
  Sender: FDA-Public Use
  Company Number: None

PATIENT
  Age: 42 Year
  Sex: Female
  Weight: 47.6277 kg

DRUGS (1)
  1. ACTONEL [Suspect]
     Indication: OSTEOPOROSIS
     Dosage: 35 MG. 1 X/WEEK PO
     Route: 048
     Dates: start: 20080920, end: 20080920

REACTIONS (7)
  - DRY MOUTH [None]
  - DYSPHAGIA [None]
  - LIP ULCERATION [None]
  - MOUTH ULCERATION [None]
  - OESOPHAGEAL ULCER [None]
  - OROPHARYNGEAL PAIN [None]
  - PHARYNGEAL ULCERATION [None]
